FAERS Safety Report 23220183 (Version 4)
Quarter: 2023Q4

REPORT INFORMATION
  Report Type: Spontaneous
  Country: IT (occurrence: IT)
  Receive Date: 20231123
  Receipt Date: 20231218
  Transmission Date: 20240110
  Serious: Yes (Death, Hospitalization, Other)
  Sender: FDA-Public Use
  Company Number: None

PATIENT
  Age: 72 Year
  Sex: Female

DRUGS (4)
  1. VENETOCLAX [Suspect]
     Active Substance: VENETOCLAX
     Indication: Acute myeloid leukaemia recurrent
     Dosage: VENETOCLAX 50 MG/DAY DURING ANTIFUNGAL PROPHYLAXIS WITH POSACONAZOLE 300 MG/DAY
     Route: 048
     Dates: start: 20230228, end: 20230320
  2. POSACONAZOLE [Concomitant]
     Active Substance: POSACONAZOLE
     Indication: Prophylaxis
  3. XOSPATA [Concomitant]
     Active Substance: GILTERITINIB
     Indication: Product used for unknown indication
     Dates: start: 20230403
  4. AZACITIDINE [Concomitant]
     Active Substance: AZACITIDINE
     Indication: Acute myeloid leukaemia recurrent
     Dates: start: 20230228

REACTIONS (5)
  - Thrombocytopenia [Fatal]
  - Septic shock [Fatal]
  - Febrile neutropenia [Fatal]
  - Pneumonia [Fatal]
  - Acute myeloid leukaemia [Unknown]

NARRATIVE: CASE EVENT DATE: 20230301
